FAERS Safety Report 10078838 (Version 2)
Quarter: 2014Q2

REPORT INFORMATION
  Report Type: Report from Study
  Country: SE (occurrence: SE)
  Receive Date: 20140415
  Receipt Date: 20140415
  Transmission Date: 20141212
  Serious: Yes (Hospitalization, Other)
  Sender: FDA-Public Use
  Company Number: SE-BAYER-2014-042237

PATIENT
  Age: 41 Year
  Sex: Female

DRUGS (1)
  1. MIRENA [Suspect]
     Dosage: 20 ?G/D, CONT
     Route: 015
     Dates: start: 20140117, end: 20140126

REACTIONS (7)
  - Device dislocation [Recovered/Resolved]
  - Procedural pain [Recovered/Resolved]
  - Back pain [Recovered/Resolved]
  - Genital haemorrhage [Recovering/Resolving]
  - Abasia [None]
  - Endometrial hypertrophy [Recovered/Resolved]
  - Incontinence [None]
